FAERS Safety Report 13149632 (Version 1)
Quarter: 2017Q1

REPORT INFORMATION
  Report Type: Spontaneous
  Country: GB (occurrence: GB)
  Receive Date: 20170125
  Receipt Date: 20170125
  Transmission Date: 20170428
  Serious: Yes (Hospitalization, Other)
  Sender: FDA-Public Use
  Company Number: GB-BRISTOL-MYERS SQUIBB COMPANY-BMS-2016-108389

PATIENT
  Age: 79 Year
  Sex: Male
  Weight: 68 kg

DRUGS (1)
  1. APIXABAN [Suspect]
     Active Substance: APIXABAN
     Indication: CEREBROVASCULAR ACCIDENT PROPHYLAXIS
     Dosage: 5 MG, UNK
     Route: 065
     Dates: start: 20161103, end: 20161215

REACTIONS (9)
  - Ileus paralytic [Unknown]
  - Rectal haemorrhage [Unknown]
  - Anaemia [Unknown]
  - Post procedural haemorrhage [Recovered/Resolved with Sequelae]
  - Pyrexia [Unknown]
  - Transfusion-related acute lung injury [Unknown]
  - Transfusion [Unknown]
  - Gastrostomy [Unknown]
  - Electrolyte imbalance [Unknown]

NARRATIVE: CASE EVENT DATE: 20161216
